FAERS Safety Report 19169410 (Version 2)
Quarter: 2021Q2

REPORT INFORMATION
  Report Type: Spontaneous
  Country: US (occurrence: US)
  Receive Date: 20210422
  Receipt Date: 20210516
  Transmission Date: 20210717
  Serious: No
  Sender: FDA-Public Use
  Company Number: US-SA-2021SA131484

PATIENT
  Age: 54 Year
  Sex: Female

DRUGS (3)
  1. ORENCIA [Concomitant]
     Active Substance: ABATACEPT
  2. KEVZARA [Suspect]
     Active Substance: SARILUMAB
     Indication: RESPIRATORY DISORDER
     Dosage: 200 MG, QOW
     Route: 058
     Dates: start: 20210318
  3. KEVZARA [Suspect]
     Active Substance: SARILUMAB
     Indication: RHEUMATOID ARTHRITIS

REACTIONS (6)
  - Injection site mass [Recovered/Resolved]
  - Product use in unapproved indication [Unknown]
  - Hypersensitivity [Recovered/Resolved]
  - Injection site erythema [Unknown]
  - Injection site inflammation [Recovered/Resolved]
  - Injection site swelling [Unknown]

NARRATIVE: CASE EVENT DATE: 2021
